FAERS Safety Report 8371627-X (Version None)
Quarter: 2012Q2

REPORT INFORMATION
  Report Type: 
  Country: None (occurrence: None)
  Receive Date: 20120518
  Receipt Date: 20120504
  Transmission Date: 20120825
  Serious: No
  Sender: FDA-Public Use
  Company Number: US-ASTRAZENECA-2012SE29380

PATIENT
  Age: 56 Year
  Sex: Male

DRUGS (9)
  1. SYMBICORT [Suspect]
     Dosage: 160/4.5MCG, TWO PUFF INHALATION TWO TIMES DAILY
     Route: 055
     Dates: start: 20120221
  2. PROVENTIL VENTOLIN [Concomitant]
     Indication: DYSPNOEA
     Dosage: 2.5 MG/3 ML TAKE 3 ML EVERY FOUR HOURS
     Route: 055
     Dates: start: 20110427
  3. VISTARIL [Concomitant]
     Indication: ANXIETY
     Dosage: 50 MG 1 CAPSULE 3 TIMES DAILY AS NEEDED
     Route: 048
     Dates: start: 20120405
  4. ATIVAN [Concomitant]
     Route: 048
     Dates: start: 20111206
  5. COREG [Concomitant]
     Route: 048
     Dates: start: 20120201
  6. PROVENTIL VENTOLIN [Concomitant]
     Dosage: 90 MCG EVERY 6 HOURS AS NEEEDED
     Route: 055
  7. SEROQUEL [Suspect]
     Route: 048
     Dates: start: 20111206
  8. VIAGRA [Concomitant]
     Indication: SEXUALLY ACTIVE
     Dosage: 100 MG 1 TIME DAILY AS NEEDED FOR SEXUAL ACTIVITY
     Route: 048
     Dates: start: 20120201
  9. LAMICTAL [Concomitant]
     Route: 048
     Dates: start: 20120405

REACTIONS (4)
  - BIPOLAR DISORDER [None]
  - SCHIZOPHRENIA [None]
  - ANXIETY [None]
  - CHRONIC OBSTRUCTIVE PULMONARY DISEASE [None]
